FAERS Safety Report 25631714 (Version 4)
Quarter: 2025Q3

REPORT INFORMATION
  Report Type: Report from Study
  Country: US (occurrence: US)
  Receive Date: 20250801
  Receipt Date: 20250905
  Transmission Date: 20251020
  Serious: Yes (Other)
  Sender: ABBVIE
  Company Number: US-ABBVIE-6393898

PATIENT
  Age: 74 Year
  Sex: Male

DRUGS (1)
  1. RINVOQ [Suspect]
     Active Substance: UPADACITINIB
     Indication: Dermatitis atopic
     Route: 048
     Dates: start: 20241003, end: 2025

REACTIONS (7)
  - Neoplasm malignant [Unknown]
  - Loss of consciousness [Unknown]
  - Pruritus [Unknown]
  - Vomiting [Unknown]
  - Hypotension [Unknown]
  - Skin atrophy [Unknown]
  - Decreased appetite [Unknown]
